FAERS Safety Report 15660827 (Version 1)
Quarter: 2018Q4

REPORT INFORMATION
  Report Type: Spontaneous
  Country: US (occurrence: US)
  Receive Date: 20181127
  Receipt Date: 20181127
  Transmission Date: 20190205
  Serious: No
  Sender: FDA-Public Use
  Company Number: US-TEVA-825529ACC

PATIENT
  Sex: Female

DRUGS (2)
  1. AZITHROMYCIN ANHYDROUS. [Suspect]
     Active Substance: AZITHROMYCIN ANHYDROUS
     Dosage: 250 MILLIGRAM DAILY;
     Dates: start: 20171109
  2. AZITHROMYCIN ANHYDROUS. [Suspect]
     Active Substance: AZITHROMYCIN ANHYDROUS
     Indication: BRONCHITIS CHRONIC
     Dosage: 500 MILLIGRAM DAILY;
     Dates: start: 20171106

REACTIONS (2)
  - Inappropriate schedule of product administration [Unknown]
  - Confusional state [Unknown]

NARRATIVE: CASE EVENT DATE: 20171109
